FAERS Safety Report 6161743-5 (Version None)
Quarter: 2009Q2

REPORT INFORMATION
  Report Type: 
  Country: None (occurrence: None)
  Receive Date: 20090421
  Receipt Date: 20090414
  Transmission Date: 20091009
  Serious: Yes (Hospitalization, Other)
  Sender: FDA-Public Use
  Company Number: US-ROCHE-624719

PATIENT
  Sex: Male
  Weight: 103 kg

DRUGS (1)
  1. CAPECITABINE [Suspect]
     Indication: COLORECTAL CANCER
     Dosage: 4 TABS BID TWO WEEKS ON AND ONE WEEK OFF.
     Route: 048
     Dates: start: 20090204, end: 20090306

REACTIONS (3)
  - ASCITES [None]
  - JAUNDICE [None]
  - MALIGNANT NEOPLASM PROGRESSION [None]
